FAERS Safety Report 4679711-9 (Version None)
Quarter: 2005Q2

REPORT INFORMATION
  Report Type: 
  Country: None (occurrence: None)
  Receive Date: 20050531
  Receipt Date: 20050517
  Transmission Date: 20051028
  Serious: Yes (Death, Hospitalization)
  Sender: FDA-Public Use
  Company Number: 2005-05-1030

PATIENT
  Age: 88 Year
  Sex: Female

DRUGS (2)
  1. K-DUR 10 [Suspect]
     Dosage: 20 MEQ ORAL
     Route: 048
  2. FORADIL [Suspect]
     Dosage: 60 MG

REACTIONS (3)
  - GANGRENE [None]
  - INFECTION [None]
  - SEPTIC SHOCK [None]
